FAERS Safety Report 8518741-3 (Version None)
Quarter: 2012Q3

REPORT INFORMATION
  Report Type: 
  Country: None (occurrence: None)
  Receive Date: 20120718
  Receipt Date: 20120710
  Transmission Date: 20120928
  Serious: Yes (Hospitalization, Other)
  Sender: FDA-Public Use
  Company Number: PHEH2012US010721

PATIENT
  Sex: Female
  Weight: 77.098 kg

DRUGS (14)
  1. ATIVAN [Concomitant]
     Indication: SLEEP DISORDER
     Dosage: 1 MG, PRN, AT BEDTIME
     Route: 048
  2. KLONOPIN [Concomitant]
     Indication: SLEEP DISORDER
     Dosage: 0.5 MG, QD, AT BEDTIME
     Route: 048
  3. ASPIRIN [Concomitant]
     Dosage: 81 MG, DAILY WITH A MEAL
     Route: 048
  4. IMITREX [Concomitant]
     Dosage: 100 MG, BID, AS NEEDED
     Route: 048
  5. DOLOPHINE HCL [Concomitant]
     Dosage: 10 MG IN THE MORNING, 10 MG IN THE AFTERNOON AND 10 MG IN THE EVENING
     Route: 048
  6. PROZAC [Concomitant]
     Dosage: 40 MG,
     Route: 048
     Dates: start: 20120412
  7. ULTRAM [Concomitant]
     Indication: PAIN
     Dosage: 50 MG, Q6H, AS NEEDED
     Route: 048
  8. LIORESAL [Concomitant]
     Dosage: 10 MG, TID
     Route: 048
  9. TOPAMAX [Concomitant]
     Dosage: 25 MG, AT BEDTIME
     Route: 048
  10. IMITREX [Concomitant]
     Indication: MIGRAINE
     Dosage: 20 MG IN ALTERNATING NOSTRILS, BID, AS NEEDED
  11. GILENYA [Suspect]
     Indication: RELAPSING-REMITTING MULTIPLE SCLEROSIS
     Dosage: 0.5 MG, QD
     Route: 048
     Dates: start: 20111207, end: 20120412
  12. COLACE [Concomitant]
     Dosage: 100 MG, BID
     Route: 048
  13. NORCO [Concomitant]
     Indication: PAIN
     Dosage: 1 DF, Q4H, AS NEEDED
     Route: 048
  14. KEFLEX [Concomitant]
     Dosage: 500 MG, TID
     Route: 048

REACTIONS (25)
  - PNEUMONIA [None]
  - GASTROOESOPHAGEAL REFLUX DISEASE [None]
  - ANXIETY [None]
  - DECREASED APPETITE [None]
  - HEAD DISCOMFORT [None]
  - THYROID NEOPLASM [None]
  - MULTIPLE SCLEROSIS RELAPSE [None]
  - HOT FLUSH [None]
  - HEADACHE [None]
  - PARAESTHESIA [None]
  - BREAST CANCER STAGE II [None]
  - IRON DEFICIENCY ANAEMIA [None]
  - MIGRAINE [None]
  - VOMITING [None]
  - PHOTOPHOBIA [None]
  - DEPRESSION [None]
  - GAIT DISTURBANCE [None]
  - HYPOAESTHESIA [None]
  - MOOD ALTERED [None]
  - FATIGUE [None]
  - NAUSEA [None]
  - FALL [None]
  - HYPERACUSIS [None]
  - MUSCULAR WEAKNESS [None]
  - SPEECH DISORDER [None]
